FAERS Safety Report 8245870-4 (Version None)
Quarter: 2012Q1

REPORT INFORMATION
  Report Type: 
  Country: None (occurrence: None)
  Receive Date: 20120328
  Receipt Date: 20120328
  Transmission Date: 20120608
  Serious: Yes (Other)
  Sender: FDA-Public Use
  Company Number: None

PATIENT
  Age: 51 Year
  Sex: Female
  Weight: 113.6 kg

DRUGS (1)
  1. EXCEDRIN EXTRA STRENGTH CAPLETS [Suspect]
     Indication: SINUS HEADACHE
     Dosage: 2 TABS 3 TID MOUTH
     Route: 048
     Dates: start: 20111117, end: 20111227

REACTIONS (4)
  - BLOOD URINE PRESENT [None]
  - HAEMORRHAGE [None]
  - HYPERSENSITIVITY [None]
  - PRODUCT QUALITY ISSUE [None]
